FAERS Safety Report 17566755 (Version 1)
Quarter: 2020Q1

REPORT INFORMATION
  Report Type: Spontaneous
  Country: US (occurrence: US)
  Receive Date: 20200320
  Receipt Date: 20200320
  Transmission Date: 20200409
  Serious: Yes (Other)
  Sender: FDA-Public Use
  Company Number: US-ELI_LILLY_AND_COMPANY-US202003005878

PATIENT
  Age: 76 Year
  Sex: Male

DRUGS (7)
  1. HUMALOG [Suspect]
     Active Substance: INSULIN LISPRO
     Dosage: 60 U, UNKNOWN
     Route: 058
  2. HUMALOG [Suspect]
     Active Substance: INSULIN LISPRO
     Indication: TYPE 2 DIABETES MELLITUS
     Dosage: 60 U, UNKNOWN
     Route: 058
  3. HUMALOG [Suspect]
     Active Substance: INSULIN LISPRO
     Indication: TYPE 2 DIABETES MELLITUS
     Dosage: 60 U, UNKNOWN
     Route: 058
  4. HUMALOG [Suspect]
     Active Substance: INSULIN LISPRO
     Dosage: 60 U, UNKNOWN
     Route: 058
  5. HUMALOG [Suspect]
     Active Substance: INSULIN LISPRO
     Dosage: 60 U, UNKNOWN
     Route: 058
  6. TOUJEO [Concomitant]
     Active Substance: INSULIN GLARGINE
     Indication: DIABETES MELLITUS
  7. HUMALOG [Suspect]
     Active Substance: INSULIN LISPRO
     Dosage: 60 U, UNKNOWN
     Route: 058

REACTIONS (6)
  - General physical health deterioration [Unknown]
  - Drug ineffective [Not Recovered/Not Resolved]
  - Chronic kidney disease [Not Recovered/Not Resolved]
  - Blood glucose increased [Not Recovered/Not Resolved]
  - Hypertension [Not Recovered/Not Resolved]
  - Lung neoplasm malignant [Not Recovered/Not Resolved]

NARRATIVE: CASE EVENT DATE: 201912
